FAERS Safety Report 8374269-5 (Version None)
Quarter: 2012Q2

REPORT INFORMATION
  Report Type: 
  Country: None (occurrence: None)
  Receive Date: 20120521
  Receipt Date: 20120515
  Transmission Date: 20120825
  Serious: Yes (Other)
  Sender: FDA-Public Use
  Company Number: CH-PFIZER INC-2012114954

PATIENT
  Age: 84 Year
  Sex: Male

DRUGS (11)
  1. LORAZEPAM [Suspect]
     Dosage: 1.5 MG, DAILY
     Route: 048
     Dates: start: 20120104, end: 20120201
  2. SEROQUEL [Suspect]
     Dosage: 50 MG, DAILY
     Route: 048
     Dates: start: 20120201, end: 20120206
  3. SEROQUEL [Suspect]
     Dosage: 75 MG, DAILY
     Route: 048
     Dates: start: 20120207, end: 20120227
  4. SEROQUEL [Suspect]
     Dosage: 100 MG, DAILY
     Dates: start: 20120228, end: 20120312
  5. PLAVIX [Suspect]
     Dosage: 75 MG, DAILY
     Route: 048
     Dates: start: 20090101, end: 20120315
  6. LORAZEPAM [Suspect]
     Dosage: 2 MG, DAILY
     Route: 048
     Dates: start: 20120220, end: 20120305
  7. PANTOPRAZOLE [Suspect]
     Dosage: UNK
     Route: 048
  8. ESCITALOPRAM [Concomitant]
     Dosage: 20 MG, DAILY
     Route: 048
     Dates: start: 20120104, end: 20120227
  9. LORAZEPAM [Suspect]
     Dosage: 1 MG, DAILY
     Dates: start: 20120306
  10. LORAZEPAM [Suspect]
     Dosage: 3 MG, DAILY
     Route: 048
     Dates: start: 20120202, end: 20120219
  11. ATORVASTATIN CALCIUM [Suspect]
     Dosage: 20 MG, DAILY
     Route: 048
     Dates: start: 20090101

REACTIONS (1)
  - PANCYTOPENIA [None]
